FAERS Safety Report 8470239-7 (Version None)
Quarter: 2012Q2

REPORT INFORMATION
  Report Type: 
  Country: None (occurrence: None)
  Receive Date: 20120621
  Receipt Date: 20120621
  Transmission Date: 20120825
  Serious: Yes (Life-Threatening, Hospitalization, Disabling, Other)
  Sender: FDA-Public Use
  Company Number: None

PATIENT
  Sex: Male
  Weight: 59.8748 kg

DRUGS (1)
  1. LEXISCAN [Suspect]
     Dates: start: 20120314, end: 20120314

REACTIONS (7)
  - NAUSEA [None]
  - CORONARY ARTERY OCCLUSION [None]
  - CHEST PAIN [None]
  - VOMITING [None]
  - HYPERHIDROSIS [None]
  - CARDIAC ARREST [None]
  - MUSCLE DISORDER [None]
